FAERS Safety Report 8831009 (Version 1)
Quarter: 2012Q4

REPORT INFORMATION
  Report Type: 
  Country: US (occurrence: US)
  Receive Date: 20121008
  Receipt Date: 20121008
  Transmission Date: 20130627
  Serious: No
  Sender: FDA-Public Use
  Company Number: US-BAYER-2012-103542

PATIENT
  Age: 73 Year
  Sex: Female
  Weight: 52 kg

DRUGS (2)
  1. ALEVE CAPLET/TABLET,MIDOL EXTENDED RELIEF CAPLET [Suspect]
     Indication: ARTHRITIS
     Dosage: 3 DF, BID
     Route: 048
     Dates: end: 201209
  2. PREMARIN [Concomitant]
     Dosage: UNK

REACTIONS (2)
  - Flatulence [Recovered/Resolved]
  - Abdominal pain upper [Recovered/Resolved]
